FAERS Safety Report 24554404 (Version 1)
Quarter: 2024Q4

REPORT INFORMATION
  Report Type: Spontaneous
  Country: FR (occurrence: FR)
  Receive Date: 20241028
  Receipt Date: 20241028
  Transmission Date: 20250115
  Serious: Yes (Hospitalization, Other)
  Sender: BRISTOL-MYERS SQUIBB COMPANY
  Company Number: None

PATIENT
  Age: 87 Year
  Sex: Male
  Weight: 85.4 kg

DRUGS (2)
  1. ELIQUIS [Suspect]
     Active Substance: APIXABAN
     Indication: Atrial fibrillation
     Dosage: 5MG 2 TIMES /DAY
     Route: 048
     Dates: end: 20240610
  2. FUROSEMIDE [Suspect]
     Active Substance: FUROSEMIDE
     Indication: Cardiomyopathy
     Dosage: 40MG 2 TIMES A DAY
     Route: 048

REACTIONS (3)
  - Anaemia [Recovered/Resolved]
  - Rectal haemorrhage [Recovered/Resolved]
  - Hypokalaemia [Recovered/Resolved]

NARRATIVE: CASE EVENT DATE: 20240602
